FAERS Safety Report 5703282-9 (Version None)
Quarter: 2008Q2

REPORT INFORMATION
  Report Type: 
  Country: None (occurrence: None)
  Receive Date: 20080411
  Receipt Date: 20080401
  Transmission Date: 20081010
  Serious: Yes (Other)
  Sender: FDA-Public Use
  Company Number: DE-ROCHE-551831

PATIENT
  Sex: Female
  Weight: 57 kg

DRUGS (5)
  1. XELODA [Suspect]
     Dosage: THE PATIENT RECEIVED DRUG ON DAYS 1 - 14 DAYS
     Route: 048
     Dates: start: 20071211, end: 20080118
  2. TAXOTERE [Suspect]
     Route: 042
     Dates: start: 20071211, end: 20080227
  3. FORTECORTIN [Concomitant]
     Route: 048
     Dates: start: 20071210, end: 20071212
  4. FORTECORTIN [Concomitant]
     Route: 048
     Dates: start: 20080103, end: 20080105
  5. NEUPOGEN 30 [Concomitant]
     Route: 058
     Dates: start: 20071219

REACTIONS (5)
  - DECUBITUS ULCER [None]
  - MOUTH ULCERATION [None]
  - PALMAR-PLANTAR ERYTHRODYSAESTHESIA SYNDROME [None]
  - SKIN DEGENERATIVE DISORDER [None]
  - SKIN DISORDER [None]
